FAERS Safety Report 7245232-2 (Version None)
Quarter: 2011Q1

REPORT INFORMATION
  Report Type: 
  Country: None (occurrence: None)
  Receive Date: 20110126
  Receipt Date: 20110121
  Transmission Date: 20110831
  Serious: Yes (Hospitalization, Other)
  Sender: FDA-Public Use
  Company Number: US-ABBOTT-11P-163-0699997-00

PATIENT
  Sex: Male
  Weight: 136.65 kg

DRUGS (1)
  1. HUMIRA [Suspect]
     Indication: PSORIASIS
     Dates: start: 20081001, end: 20100901

REACTIONS (13)
  - ABDOMINAL PAIN [None]
  - IMPAIRED HEALING [None]
  - PSORIASIS [None]
  - DYSPNOEA [None]
  - FAECES DISCOLOURED [None]
  - SMALL INTESTINAL PERFORATION [None]
  - PNEUMONIA [None]
  - ABDOMINAL MASS [None]
  - ABDOMINAL HERNIA [None]
  - ABDOMINAL ABSCESS [None]
  - GALLBLADDER ENLARGEMENT [None]
  - LYMPHOMA [None]
  - CONSTIPATION [None]
